FAERS Safety Report 14646501 (Version 2)
Quarter: 2018Q1

REPORT INFORMATION
  Report Type: Spontaneous
  Country: US (occurrence: US)
  Receive Date: 20180316
  Receipt Date: 20180323
  Transmission Date: 20180509
  Serious: Yes (Other)
  Sender: FDA-Public Use
  Company Number: US-ROCHE-2088305

PATIENT
  Sex: Female

DRUGS (3)
  1. BENADRYL [Concomitant]
     Active Substance: DIPHENHYDRAMINE HYDROCHLORIDE
     Dosage: DOSAGE INCREASED DUE TO EVENTS. ONGOING: UNKNOWN
     Route: 065
     Dates: start: 20180308
  2. OCREVUS [Suspect]
     Active Substance: OCRELIZUMAB
     Indication: MULTIPLE SCLEROSIS RELAPSE
     Dosage: DOSE CUT IN HALF
     Route: 042
     Dates: start: 20180308
  3. SOLU-MEDROL [Concomitant]
     Active Substance: METHYLPREDNISOLONE SODIUM SUCCINATE
     Route: 065

REACTIONS (8)
  - Chest pain [Recovered/Resolved]
  - Throat irritation [Recovered/Resolved]
  - Blood pressure decreased [Recovered/Resolved]
  - Pruritus generalised [Recovered/Resolved]
  - Throat tightness [Recovered/Resolved]
  - Ear pruritus [Recovered/Resolved]
  - Pharyngeal mass [Recovered/Resolved]
  - Dyspnoea [Recovered/Resolved]

NARRATIVE: CASE EVENT DATE: 20180308
